FAERS Safety Report 9260045 (Version 4)
Quarter: 2013Q2

REPORT INFORMATION
  Report Type: Spontaneous
  Country: US (occurrence: US)
  Receive Date: 20130429
  Receipt Date: 20130613
  Transmission Date: 20140414
  Serious: Yes (Hospitalization)
  Sender: FDA-Public Use
  Company Number: US-JNJFOC-20130411983

PATIENT
  Age: 82 Year
  Sex: Female

DRUGS (19)
  1. XARELTO [Suspect]
     Indication: DEEP VEIN THROMBOSIS
     Route: 048
     Dates: start: 20130411, end: 20130416
  2. XARELTO [Suspect]
     Indication: DEEP VEIN THROMBOSIS
     Dosage: 30 MG
     Route: 048
     Dates: start: 20130320, end: 20130410
  3. CALCIUM CARBONATE [Concomitant]
     Dosage: WITH MEALS
     Route: 048
  4. ACCUNEB [Concomitant]
     Indication: DYSPNOEA
     Dosage: (1.25 MG TOATAL) BY NEBULIZATION EVERY 6 HOURS AS NEEDED
     Route: 065
  5. ASPIRIN [Concomitant]
     Dosage: BY MOUTH
     Route: 048
     Dates: start: 20130416, end: 20130430
  6. LIPITOR [Concomitant]
     Route: 048
  7. BENADRYL [Concomitant]
     Dosage: 2 TIMES DAILY AS NEEDED
     Route: 048
  8. LASIX [Concomitant]
     Dosage: BY MOUTH
     Route: 048
  9. PRINIVIL [Concomitant]
     Dosage: 1 TABLET
     Route: 048
  10. CLARITIN [Concomitant]
     Dosage: BY MOUTH DAILY
     Route: 048
  11. ASMANEX [Concomitant]
     Dosage: 30 DOSES, 1 PUFF AS DIRECTED NIGHTLY AS NEEDED
     Route: 055
  12. MULTIVITAMINS W/MINERALS [Concomitant]
     Dosage: 1 TABLET BY MOUTH
     Route: 048
  13. POTASSIUM CHLORIDE [Concomitant]
     Route: 048
  14. PREDNISONE [Concomitant]
     Dosage: BY MOUTH AS NEEDED
     Route: 048
  15. EVISTA [Concomitant]
     Dosage: 60 MG TOTAL BY MOUTH EVERY EVENING
     Route: 048
  16. SALMETEROL [Concomitant]
     Dosage: 2 PUFFS AS DIRECTED 2 TIMES DAILY
     Route: 055
  17. TYLENOL [Concomitant]
     Dosage: TAKE 650 MG BY MOUTH EVERY 6 HOURS AS NEEDED
     Route: 048
  18. SPIRIVA [Concomitant]
     Dosage: AS DIRECTED DAILY
     Route: 055
  19. AMBIEN [Concomitant]
     Dosage: BY MOUTH NIGHTLY AS NEEDED
     Route: 048

REACTIONS (6)
  - Perinephric collection [Not Recovered/Not Resolved]
  - Anaemia [Unknown]
  - Perirenal haematoma [Recovered/Resolved]
  - Abdominal pain [Recovering/Resolving]
  - Blood glucose increased [Unknown]
  - Mobility decreased [Unknown]
